FAERS Safety Report 24043625 (Version 1)
Quarter: 2024Q3

REPORT INFORMATION
  Report Type: Spontaneous
  Country: CN (occurrence: CN)
  Receive Date: 20240703
  Receipt Date: 20240703
  Transmission Date: 20241016
  Serious: Yes (Hospitalization, Other)
  Sender: Haleon PLC
  Company Number: CN-HALEON-2184063

PATIENT
  Age: 36 Year
  Sex: Male
  Weight: 70 kg

DRUGS (2)
  1. IBUPROFEN [Suspect]
     Active Substance: IBUPROFEN
     Indication: Headache
     Route: 048
     Dates: start: 20240615, end: 20240615
  2. AMOXICILLIN [Suspect]
     Active Substance: AMOXICILLIN
     Indication: Abdominal pain
     Route: 048
     Dates: start: 20240613, end: 20240615

REACTIONS (4)
  - Hepatic failure [Recovering/Resolving]
  - Vomiting [Recovering/Resolving]
  - Hepatic function abnormal [Recovering/Resolving]
  - Abdominal distension [Recovering/Resolving]

NARRATIVE: CASE EVENT DATE: 20240615
